FAERS Safety Report 25914674 (Version 1)
Quarter: 2025Q4

REPORT INFORMATION
  Report Type: Spontaneous
  Country: BR (occurrence: BR)
  Receive Date: 20251013
  Receipt Date: 20251013
  Transmission Date: 20260117
  Serious: Yes (Other)
  Sender: Haleon PLC
  Company Number: BR-KENVUE-20250901921

PATIENT
  Age: 70 Year
  Sex: Male

DRUGS (2)
  1. NICORETTE [Suspect]
     Active Substance: NICOTINE
     Indication: Smoking cessation therapy
     Dosage: ONE AT A TIME ONE BLISTER PACK PER DAY
     Route: 065
  2. NICORETTE [Suspect]
     Active Substance: NICOTINE
     Dosage: ONE AT A TIME ONE BLISTER PACK PER DAY
     Route: 065

REACTIONS (3)
  - Drug dependence [Not Recovered/Not Resolved]
  - Incorrect product administration duration [Unknown]
  - Contraindicated product administered [Unknown]
